FAERS Safety Report 9669300 (Version 1)
Quarter: 2013Q4

REPORT INFORMATION
  Report Type: Spontaneous
  Country: DE (occurrence: None)
  Receive Date: 20131101
  Receipt Date: 20131101
  Transmission Date: 20140711
  Serious: Yes (Hospitalization, Other)
  Sender: FDA-Public Use
  Company Number: 1310-1359

PATIENT
  Age: 75 Year
  Sex: Female

DRUGS (1)
  1. EYELEA [Suspect]
     Indication: AGE-RELATED MACULAR DEGENERATION
     Route: 031
     Dates: start: 20121227

REACTIONS (3)
  - Haemorrhage [None]
  - Fatigue [None]
  - Bile duct stone [None]
